FAERS Safety Report 4871523-6 (Version None)
Quarter: 2005Q4

REPORT INFORMATION
  Report Type: 
  Country: None (occurrence: None)
  Receive Date: 20051229
  Receipt Date: 20051215
  Transmission Date: 20060501
  Serious: No
  Sender: FDA-Public Use
  Company Number: 0205061

PATIENT
  Age: 85 Year
  Sex: Male

DRUGS (1)
  1. DEPODUR [Suspect]
     Indication: ANALGESIC EFFECT

REACTIONS (1)
  - RESPIRATORY DISTRESS [None]
